FAERS Safety Report 16023663 (Version 1)
Quarter: 2019Q1

REPORT INFORMATION
  Report Type: Spontaneous
  Country: US (occurrence: US)
  Receive Date: 20190301
  Receipt Date: 20190301
  Transmission Date: 20190418
  Serious: Yes (Other)
  Sender: FDA-Public Use
  Company Number: US-AMGEN-USASP2019030103

PATIENT
  Age: 81 Year
  Sex: Female

DRUGS (2)
  1. MEDROL [Concomitant]
     Active Substance: METHYLPREDNISOLONE
  2. PROLIA [Suspect]
     Active Substance: DENOSUMAB
     Indication: PRODUCT USED FOR UNKNOWN INDICATION
     Dosage: UNK
     Route: 065
     Dates: start: 20180601

REACTIONS (1)
  - Polymyalgia rheumatica [Unknown]

NARRATIVE: CASE EVENT DATE: 201806
